FAERS Safety Report 9323992 (Version 2)
Quarter: 2013Q4

REPORT INFORMATION
  Report Type: Spontaneous
  Country: US (occurrence: US)
  Receive Date: 20130603
  Receipt Date: 20131017
  Transmission Date: 20140711
  Serious: Yes (Death)
  Sender: FDA-Public Use
  Company Number: US-JNJFOC-20130522953

PATIENT
  Age: 62 Year
  Sex: Male

DRUGS (1)
  1. REMICADE [Suspect]
     Indication: PSORIATIC ARTHROPATHY
     Route: 042

REACTIONS (1)
  - Acute respiratory distress syndrome [Fatal]
